FAERS Safety Report 13449966 (Version 1)
Quarter: 2017Q2

REPORT INFORMATION
  Report Type: Spontaneous
  Country: US (occurrence: US)
  Receive Date: 20170417
  Receipt Date: 20170417
  Transmission Date: 20170830
  Serious: No
  Sender: FDA-Public Use
  Company Number: US-BION-20160392

PATIENT
  Age: 40 Year
  Sex: Female
  Weight: 44.45 kg

DRUGS (1)
  1. ALEVE [Suspect]
     Active Substance: NAPROXEN SODIUM
     Indication: MIGRAINE
     Dosage: 2 DF AS NEEDED
     Route: 048

REACTIONS (3)
  - Intentional overdose [Unknown]
  - Product odour abnormal [Unknown]
  - Product physical issue [Unknown]
